FAERS Safety Report 8511907-8 (Version None)
Quarter: 2012Q3

REPORT INFORMATION
  Report Type: 
  Country: None (occurrence: None)
  Receive Date: 20120716
  Receipt Date: 20120711
  Transmission Date: 20120928
  Serious: Yes (Other)
  Sender: FDA-Public Use
  Company Number: US-PFIZER INC-2012167113

PATIENT
  Sex: Female
  Weight: 49.89 kg

DRUGS (3)
  1. ZYRTEC [Concomitant]
     Indication: HYPERSENSITIVITY
     Dosage: UNK
  2. LIPITOR [Suspect]
     Dosage: 10 MG, ONCE A DAY
     Route: 048
     Dates: end: 20120516
  3. LIPITOR [Suspect]
     Indication: BLOOD CHOLESTEROL INCREASED
     Dosage: 10 MG, ONCE A DAY
     Route: 048

REACTIONS (8)
  - PSYCHOMOTOR HYPERACTIVITY [None]
  - DEMENTIA [None]
  - AGGRESSION [None]
  - FEELING ABNORMAL [None]
  - INSOMNIA [None]
  - MEMORY IMPAIRMENT [None]
  - AGITATION [None]
  - BLOOD CHOLESTEROL INCREASED [None]
